FAERS Safety Report 15843588 (Version 6)
Quarter: 2019Q1

REPORT INFORMATION
  Report Type: Spontaneous
  Country: LT (occurrence: LT)
  Receive Date: 20190118
  Receipt Date: 20190208
  Transmission Date: 20190417
  Serious: Yes (Death, Life-Threatening, Hospitalization, Other)
  Sender: FDA-Public Use
  Company Number: LT-PFIZER INC-2019020617

PATIENT
  Age: 78 Year
  Sex: Male

DRUGS (8)
  1. METHYLPREDNISOLONE. [Concomitant]
     Active Substance: METHYLPREDNISOLONE
     Indication: VASCULITIS
     Dosage: 32 MG, DAILY
     Dates: start: 201801
  2. AMIODARONE HCL [Suspect]
     Active Substance: AMIODARONE HYDROCHLORIDE
     Indication: ATRIAL FIBRILLATION
     Dosage: 400 MG, DAILY (16 YEARS)
     Route: 065
     Dates: start: 2002, end: 20180102
  3. AMIODARONE [Suspect]
     Active Substance: AMIODARONE
     Indication: ATRIAL FIBRILLATION
     Dosage: 300 MG, UNK (300 MG IV SOLUTION)
     Route: 042
     Dates: start: 201801, end: 20180102
  4. METHYLPREDNISOLONE. [Concomitant]
     Active Substance: METHYLPREDNISOLONE
     Indication: TEMPORAL ARTERITIS
     Dosage: 8 MG, DAILY (MORE THAN A HALF-A-YEAR AGO)
     Dates: start: 20170518, end: 20180102
  5. AMIODARONE HCL [Suspect]
     Active Substance: AMIODARONE HYDROCHLORIDE
     Dosage: 400 MG, DAILY (QD TABLETS)
     Route: 065
     Dates: start: 2002, end: 20180102
  6. CEFUROXIME. [Concomitant]
     Active Substance: CEFUROXIME
     Indication: EVIDENCE BASED TREATMENT
  7. METHYLPREDNISOLONE. [Concomitant]
     Active Substance: METHYLPREDNISOLONE
     Indication: EVIDENCE BASED TREATMENT
  8. CEFUROXIME. [Concomitant]
     Active Substance: CEFUROXIME
     Indication: VASCULITIS
     Dosage: 4.5 G, DAILY

REACTIONS (23)
  - Bronchiectasis [Unknown]
  - Pulmonary fibrosis [Unknown]
  - Lymphadenopathy mediastinal [Unknown]
  - Emphysema [Unknown]
  - Traumatic lung injury [Unknown]
  - Sinus rhythm [Unknown]
  - Pyrexia [Unknown]
  - Malaise [Unknown]
  - Condition aggravated [Unknown]
  - Cough [Unknown]
  - Weight decreased [Unknown]
  - Pneumonia [Fatal]
  - Tachypnoea [Unknown]
  - Acute respiratory failure [Unknown]
  - Drug ineffective [Unknown]
  - Cardiac septal defect [Recovered/Resolved]
  - Tuberculosis [Unknown]
  - Respiratory failure [Unknown]
  - Pulmonary vasculitis [Unknown]
  - Pulmonary toxicity [Unknown]
  - Interstitial lung disease [Unknown]
  - Dyspnoea [Unknown]
  - Chest discomfort [Unknown]

NARRATIVE: CASE EVENT DATE: 201801
